FAERS Safety Report 23260029 (Version 1)
Quarter: 2023Q4

REPORT INFORMATION
  Report Type: Spontaneous
  Country: TW (occurrence: TW)
  Receive Date: 20231204
  Receipt Date: 20231204
  Transmission Date: 20240110
  Serious: Yes (Other)
  Sender: FDA-Public Use
  Company Number: TW-FreseniusKabi-FK202319324

PATIENT
  Age: 50 Year
  Sex: Female

DRUGS (10)
  1. CARBOPLATIN [Suspect]
     Active Substance: CARBOPLATIN
     Indication: Lung adenocarcinoma
     Dates: start: 202104, end: 202109
  2. PEMETREXED [Suspect]
     Active Substance: PEMETREXED
     Indication: Lung adenocarcinoma
     Dates: start: 202104, end: 202109
  3. PEMETREXED [Suspect]
     Active Substance: PEMETREXED
     Dosage: IP WAS IMPLEMENTED ON DAY 1 AND 5 EVERY 21 DAYS, ALONG WITH AUXILIARY BETAMETHASONE VIA LUMBAR DRAIN
  4. PEMETREXED [Suspect]
     Active Substance: PEMETREXED
     Dosage: IP WAS IMPLEMENTED ON DAY 1 AND 5 EVERY 21 DAYS, ALONG WITH AUXILIARY BETAMETHASONE VIA LUMBAR DRAIN
  5. OSIMERTINIB [Suspect]
     Active Substance: OSIMERTINIB
     Indication: Lung adenocarcinoma
     Dates: start: 202104, end: 202109
  6. OSIMERTINIB [Suspect]
     Active Substance: OSIMERTINIB
  7. ATEZOLIZUMAB [Suspect]
     Active Substance: ATEZOLIZUMAB
     Indication: Lung adenocarcinoma
     Dates: start: 202104, end: 202109
  8. CETUXIMAB [Suspect]
     Active Substance: CETUXIMAB
     Indication: Lung adenocarcinoma
     Dates: start: 202104, end: 202109
  9. BEVACIZUMAB [Concomitant]
     Active Substance: BEVACIZUMAB
     Indication: Lung adenocarcinoma
  10. BETAMETHASONE [Concomitant]
     Active Substance: BETAMETHASONE\BETAMETHASONE DIPROPIONATE
     Indication: Lung adenocarcinoma
     Dosage: IP WAS IMPLEMENTED ON DAY 1 AND 5 EVERY 21 DAYS, ALONG WITH AUXILIARY BETAMETHASONE VIA LUMBAR DRAIN

REACTIONS (6)
  - Deafness [Recovered/Resolved]
  - Neutropenia [Unknown]
  - Malaise [Recovered/Resolved]
  - Mucosal inflammation [Recovered/Resolved]
  - Headache [Recovered/Resolved]
  - Dysarthria [Recovered/Resolved]
